FAERS Safety Report 5655638-0 (Version None)
Quarter: 2008Q1

REPORT INFORMATION
  Report Type: 
  Country: None (occurrence: None)
  Receive Date: 20080307
  Receipt Date: 20080303
  Transmission Date: 20080703
  Serious: Yes (Hospitalization)
  Sender: FDA-Public Use
  Company Number: US-JNJFOC-20080301360

PATIENT
  Age: 52 Year
  Sex: Male

DRUGS (1)
  1. ULTRAM ER [Suspect]
     Indication: ARTHRALGIA
     Route: 048

REACTIONS (1)
  - URINARY INCONTINENCE [None]
